FAERS Safety Report 19673159 (Version 3)
Quarter: 2021Q4

REPORT INFORMATION
  Report Type: Report from Study
  Country: GB (occurrence: GB)
  Receive Date: 20210809
  Receipt Date: 20211026
  Transmission Date: 20220304
  Serious: Yes (Hospitalization, Other)
  Sender: FDA-Public Use
  Company Number: None

PATIENT
  Age: 67 Year
  Sex: Female
  Weight: 65.9 kg

DRUGS (27)
  1. CARBOPLATIN [Suspect]
     Active Substance: CARBOPLATIN
     Indication: Small cell lung cancer extensive stage
     Route: 065
     Dates: start: 20210401
  2. ETOPOSIDE [Suspect]
     Active Substance: ETOPOSIDE
     Indication: Small cell lung cancer extensive stage
     Route: 065
     Dates: start: 20210401
  3. ATEZOLIZUMAB [Suspect]
     Active Substance: ATEZOLIZUMAB
     Indication: Small cell lung cancer extensive stage
     Dosage: DATE OF MOST RECENT DOSE OF STUDY DRUG PRIOR TO AE:13/MAY/2021
     Route: 041
     Dates: start: 20210401
  4. ETOPOSIDE [Suspect]
     Active Substance: ETOPOSIDE
     Indication: Product used for unknown indication
     Route: 048
     Dates: start: 20210423
  5. RAMIPRIL [Concomitant]
     Active Substance: RAMIPRIL
     Route: 065
     Dates: start: 2011
  6. SANDO-K [Concomitant]
     Route: 065
     Dates: start: 20210623, end: 20210626
  7. SENNOSIDES A AND B [Concomitant]
     Active Substance: SENNOSIDES A AND B
     Route: 065
     Dates: start: 20210522
  8. THIAMINE [Concomitant]
     Active Substance: THIAMINE
     Dosage: PREVENT OR TREAT VITAMIN B DEFICIENCY.
     Route: 065
     Dates: start: 20210624, end: 20210628
  9. AMLODIPINE [Concomitant]
     Active Substance: AMLODIPINE BESYLATE
     Route: 065
     Dates: start: 2011
  10. AMOXICILLIN [Concomitant]
     Active Substance: AMOXICILLIN
     Route: 065
     Dates: start: 20210427
  11. AMOXICILLIN\CLAVULANATE POTASSIUM [Concomitant]
     Active Substance: AMOXICILLIN\CLAVULANATE POTASSIUM
     Dosage: AMOXICILLIN 500MG +POTASSIUM?CLAVUNALATE 125MG TABLET
     Route: 065
     Dates: start: 20210522, end: 20210531
  12. BISACODYL [Concomitant]
     Active Substance: BISACODYL
     Route: 065
     Dates: start: 20210426
  13. BISOPROLOL [Concomitant]
     Active Substance: BISOPROLOL
     Route: 065
     Dates: start: 2019
  14. DEXAMETHASONE [Concomitant]
     Active Substance: DEXAMETHASONE
     Route: 065
     Dates: start: 20210422, end: 20210422
  15. DOCUSATE SODIUM [Concomitant]
     Active Substance: DOCUSATE SODIUM
     Route: 065
     Dates: start: 20210620
  16. FILGRASTIM [Concomitant]
     Active Substance: FILGRASTIM
     Dosage: 30 MILLION UNITS/ 0.5ML?INJECTION
     Route: 065
     Dates: start: 20210625, end: 20210628
  17. GLYCERIN [Concomitant]
     Active Substance: GLYCERIN
     Route: 065
     Dates: start: 20210430
  18. METOCLOPRAMIDE [Concomitant]
     Active Substance: METOCLOPRAMIDE
     Dosage: NAUSEA AND VOMITING. 10 MG,
     Route: 065
     Dates: start: 20210620
  19. MOVICOL [Concomitant]
     Active Substance: POLYETHYLENE GLYCOL 3350\POTASSIUM CHLORIDE\SODIUM BICARBONATE\SODIUM CHLORIDE
     Route: 065
     Dates: start: 20210427
  20. NICOTINE [Concomitant]
     Active Substance: NICOTINE
     Dosage: 21MG/24HOUR TRANSDERMAL PATCH
     Route: 062
     Dates: start: 20210522
  21. CHLORAL HYDRATE [Concomitant]
     Active Substance: CHLORAL HYDRATE
     Route: 065
     Dates: start: 20210522
  22. ONDANSETRON [Concomitant]
     Active Substance: ONDANSETRON
     Route: 065
     Dates: start: 20210610, end: 20210610
  23. ACETAMINOPHEN [Concomitant]
     Active Substance: ACETAMINOPHEN
     Dosage: 1G, WHEN REQUIRED WITH A MINIMUM?DOSAGE INTERVAL OF 4 HOURS AND A?MAXIMUM OF 4 DOSES PER 24 HOURS
     Route: 065
     Dates: start: 20210522
  24. SODIUM PHOSPHATE, MONOBASIC, ANHYDROUS [Concomitant]
     Active Substance: SODIUM PHOSPHATE, MONOBASIC, ANHYDROUS
     Dosage: EFFERVESCENT
     Route: 065
     Dates: start: 20210527, end: 20210529
  25. ACIDEX [Concomitant]
     Indication: Dyspepsia
     Dosage: PEPTAC ANISEED ORAL LIQUID SUGAR-FREE, NOCTE (10 - 20) ML NOCTE
     Route: 048
     Dates: start: 20210620
  26. POLYETHYLENE GLYCOL 3350\POTASSIUM CHLORIDE\SODIUM BICARBONATE\SODIUM [Concomitant]
     Active Substance: POLYETHYLENE GLYCOL 3350\POTASSIUM CHLORIDE\SODIUM BICARBONATE\SODIUM CHLORIDE
  27. SENNA [Concomitant]
     Active Substance: SENNA LEAF\SENNOSIDES\SENNOSIDES A AND B
     Dates: start: 202103, end: 20210419

REACTIONS (9)
  - Back pain [Not Recovered/Not Resolved]
  - Neutropenic sepsis [Recovered/Resolved]
  - Endometrial cancer [Not Recovered/Not Resolved]
  - Immune-mediated enterocolitis [Recovered/Resolved]
  - Constipation [Unknown]
  - Abdominal pain [Recovered/Resolved]
  - Asthenia [Recovered/Resolved]
  - Thrombocytopenia [Recovered/Resolved]
  - Body temperature decreased [Recovered/Resolved]

NARRATIVE: CASE EVENT DATE: 20210404
